FAERS Safety Report 6104175-8 (Version None)
Quarter: 2009Q1

REPORT INFORMATION
  Report Type: 
  Country: None (occurrence: None)
  Receive Date: 20090305
  Receipt Date: 20090220
  Transmission Date: 20090719
  Serious: Yes (Life-Threatening, Hospitalization)
  Sender: FDA-Public Use
  Company Number: US-GENENTECH-269406

PATIENT
  Sex: Female
  Weight: 89 kg

DRUGS (8)
  1. XOLAIR [Suspect]
     Indication: ASTHMA
     Dosage: 150 MG, Q4W
     Route: 058
     Dates: start: 20080924, end: 20080924
  2. ASTELIN [Concomitant]
     Indication: HISTAMINE LEVEL INCREASED
     Dosage: 2 PUFF, QD
     Route: 045
     Dates: start: 20080117
  3. SYMBICORT [Concomitant]
     Indication: ASTHMA
     Dosage: 2 PUFF, BID
     Route: 055
     Dates: start: 20080205
  4. PANTOPRAZOLE [Concomitant]
     Indication: GASTROOESOPHAGEAL REFLUX DISEASE
     Dosage: 40 MG, QD
     Route: 048
     Dates: start: 20080117
  5. SINGULAIR [Concomitant]
     Indication: DRUG USE FOR UNKNOWN INDICATION
     Dosage: 10 MG, QD
     Route: 048
     Dates: start: 20071001
  6. XYZAL [Concomitant]
     Indication: RHINITIS ALLERGIC
     Dosage: 5 MG, QD
     Route: 048
     Dates: start: 20080731
  7. FEXOFENADINE [Concomitant]
     Indication: RHINITIS ALLERGIC
     Dosage: 180 MG, PRN
     Route: 048
     Dates: start: 20080612
  8. NASAREL (UNITED STATES) [Concomitant]
     Indication: DRUG USE FOR UNKNOWN INDICATION
     Dosage: 18 A?G, UNK

REACTIONS (1)
  - ANAPHYLACTIC REACTION [None]
